FAERS Safety Report 4326065-3 (Version None)
Quarter: 2004Q1

REPORT INFORMATION
  Report Type: 
  Country: None (occurrence: None)
  Receive Date: 20040323
  Receipt Date: 20040316
  Transmission Date: 20041129
  Serious: Yes (Hospitalization, Other)
  Sender: FDA-Public Use
  Company Number: QUI-1773-AE

PATIENT
  Sex: Male

DRUGS (2)
  1. QUIXIN [Suspect]
     Indication: CONJUNCTIVITIS
     Dosage: 1 DRP[ QOD. TP[OCALLY
     Route: 061
     Dates: end: 20040310
  2. CECLOR [Concomitant]

REACTIONS (1)
  - GUILLAIN-BARRE SYNDROME [None]
